FAERS Safety Report 17348738 (Version 6)
Quarter: 2020Q4

REPORT INFORMATION
  Report Type: Spontaneous
  Country: US (occurrence: US)
  Receive Date: 20200130
  Receipt Date: 20201022
  Transmission Date: 20210113
  Serious: No
  Sender: FDA-Public Use
  Company Number: US-PFIZER INC-2020041278

PATIENT
  Age: 69 Year
  Sex: Female

DRUGS (4)
  1. INLYTA [Suspect]
     Active Substance: AXITINIB
     Indication: RENAL CANCER
     Dosage: 5 MG, 2X/DAY
  2. INLYTA [Suspect]
     Active Substance: AXITINIB
     Indication: BRAIN NEOPLASM MALIGNANT
     Dosage: 15 MG, DAILY (TAKE (TWO) 5MG TABLETS IN THE AM AND (ONE) 5MG TABLET IN THE EVENING)
  3. INLYTA [Suspect]
     Active Substance: AXITINIB
     Indication: OFFICE VISIT
  4. INLYTA [Suspect]
     Active Substance: AXITINIB
     Indication: RENAL DISORDER
     Dosage: 10 MG, 2X/DAY

REACTIONS (1)
  - Neoplasm progression [Unknown]
